FAERS Safety Report 8762476 (Version 1)
Quarter: 2012Q4

REPORT INFORMATION
  Report Type: 
  Country: GB (occurrence: GB)
  Receive Date: 20120828
  Receipt Date: 20120828
  Transmission Date: 20130627
  Serious: Yes (Hospitalization, Other)
  Sender: FDA-Public Use
  Company Number: GB-PFIZER INC-2012205456

PATIENT
  Sex: Female

DRUGS (2)
  1. SALAZOPYRIN [Suspect]
     Indication: PSORIATIC ARTHROPATHY
     Dosage: 4 tablets daily
  2. SALAZOPYRIN [Suspect]
     Dosage: 500 mg x2 daily

REACTIONS (2)
  - Incorrect dose administered [Unknown]
  - Pericarditis [Unknown]
